FAERS Safety Report 17545618 (Version 1)
Quarter: 2020Q1

REPORT INFORMATION
  Report Type: Spontaneous
  Country: FR (occurrence: FR)
  Receive Date: 20200316
  Receipt Date: 20200316
  Transmission Date: 20200409
  Serious: Yes (Death, Other)
  Sender: FDA-Public Use
  Company Number: FR-MYLANLABS-2020M1026485

PATIENT
  Age: 6 Month
  Sex: Male

DRUGS (3)
  1. CLOFARABINE. [Suspect]
     Active Substance: CLOFARABINE
     Indication: LANGERHANS^ CELL HISTIOCYTOSIS
     Dosage: 2 MILLIGRAM/SQ. METER, QD
     Route: 065
  2. VEMURAFENIB. [Interacting]
     Active Substance: VEMURAFENIB
     Dosage: DOUBLE THE DOSE TO 68 MG/KG/DAY
     Route: 065
  3. VEMURAFENIB. [Interacting]
     Active Substance: VEMURAFENIB
     Indication: LANGERHANS^ CELL HISTIOCYTOSIS
     Dosage: 34 MG/KG/DAY (480 MG FOR 14 KG BODY WEIGHT)
     Route: 065

REACTIONS (4)
  - Neutropenia [Unknown]
  - Sepsis [Fatal]
  - Drug interaction [Unknown]
  - Enterobacter infection [Fatal]
